FAERS Safety Report 4467022-6 (Version None)
Quarter: 2004Q4

REPORT INFORMATION
  Report Type: 
  Country: None (occurrence: None)
  Receive Date: 20041001
  Receipt Date: 20041001
  Transmission Date: 20050328
  Serious: Yes (Hospitalization, Disabling)
  Sender: FDA-Public Use
  Company Number: None

PATIENT
  Age: 49 Year
  Sex: Male
  Weight: 111.1313 kg

DRUGS (1)
  1. VIOXX [Suspect]
     Indication: ARTHRITIS
     Dosage: 1 TAB  DAILY
     Dates: start: 20000309, end: 20040930

REACTIONS (2)
  - ASTHENIA [None]
  - TRANSIENT ISCHAEMIC ATTACK [None]
